FAERS Safety Report 8989774 (Version 1)
Quarter: 2012Q4

REPORT INFORMATION
  Report Type: 
  Country: US (occurrence: US)
  Receive Date: 20121228
  Receipt Date: 20121228
  Transmission Date: 20130627
  Serious: No
  Sender: FDA-Public Use
  Company Number: US-ASTRAZENECA-2012SE93837

PATIENT
  Age: 57 Year
  Sex: Female
  Weight: 90.3 kg

DRUGS (3)
  1. METOPROLOL [Suspect]
     Indication: HEART ALTERNATION
     Dosage: GENERIC
     Route: 048
     Dates: start: 20111204
  2. DEXILANT [Concomitant]
     Indication: ABDOMINAL DISCOMFORT
  3. VITAMINS [Concomitant]

REACTIONS (3)
  - Gastric disorder [Unknown]
  - Intentional drug misuse [Unknown]
  - Off label use [Unknown]
